FAERS Safety Report 26023479 (Version 1)
Quarter: 2025Q4

REPORT INFORMATION
  Report Type: Spontaneous
  Country: US (occurrence: US)
  Receive Date: 20251111
  Receipt Date: 20251111
  Transmission Date: 20260118
  Serious: Yes (Hospitalization)
  Sender: BAXTER
  Company Number: US-MLMSERVICE-20251030-PI691376-00029-2

PATIENT
  Age: 5 Year
  Sex: Female

DRUGS (1)
  1. ACETAMINOPHEN [Suspect]
     Active Substance: ACETAMINOPHEN
     Dosage: UNKNOWN QUANTITY OF ADULT-FORMULATION ACETAMINOPHEN OF UNSPECIFIED STRENGTH
     Route: 065

REACTIONS (3)
  - Accidental exposure to product by child [Unknown]
  - Overdose [Unknown]
  - Gastrointestinal disorder [Recovered/Resolved]
